FAERS Safety Report 6609337-9 (Version None)
Quarter: 2010Q1

REPORT INFORMATION
  Report Type: 
  Country: None (occurrence: None)
  Receive Date: 20100302
  Receipt Date: 20100222
  Transmission Date: 20100710
  Serious: No
  Sender: FDA-Public Use
  Company Number: US-BIOGENIDEC-2010BI001988

PATIENT
  Age: 39 Year
  Sex: Female

DRUGS (2)
  1. TYSABRI [Suspect]
     Indication: MULTIPLE SCLEROSIS
     Route: 042
     Dates: start: 20090901, end: 20100210
  2. TYSABRI [Suspect]
     Route: 042
     Dates: start: 20080731, end: 20090801

REACTIONS (1)
  - THROMBOCYTOPENIA [None]
